FAERS Safety Report 5398562-3 (Version None)
Quarter: 2007Q3

REPORT INFORMATION
  Report Type: 
  Country: None (occurrence: None)
  Receive Date: 20070726
  Receipt Date: 20061102
  Transmission Date: 20080115
  Serious: No
  Sender: FDA-Public Use
  Company Number: US-AMGEN-KDL199148

PATIENT
  Sex: Female

DRUGS (8)
  1. PROCRIT [Suspect]
     Indication: ANAEMIA
     Dates: start: 20000501, end: 20060801
  2. LANTUS [Concomitant]
  3. NOVOLOG [Concomitant]
  4. PRANDIN [Concomitant]
  5. METFORMIN HCL [Concomitant]
  6. LEVOXYL [Concomitant]
  7. ACTONEL [Concomitant]
     Route: 048
  8. ASPIRIN [Concomitant]

REACTIONS (2)
  - BLOOD PRESSURE SYSTOLIC INCREASED [None]
  - PHARYNGOLARYNGEAL PAIN [None]
